FAERS Safety Report 9863254 (Version 1)
Quarter: 2014Q1

REPORT INFORMATION
  Report Type: Spontaneous
  Country: US (occurrence: US)
  Receive Date: 20140203
  Receipt Date: 20140203
  Transmission Date: 20141002
  Serious: No
  Sender: FDA-Public Use
  Company Number: US-TARO-2013P1005542

PATIENT
  Age: 41 Year
  Sex: Female
  Weight: 56.7 kg

DRUGS (5)
  1. NYSTATIN + TRIAMCINOLONE ACETONIDE CREAM USP [Suspect]
     Indication: FUNGAL INFECTION
     Route: 061
     Dates: start: 20130429, end: 20130505
  2. OMEPRAZOLE [Concomitant]
  3. PHENYLEPHRINE [Concomitant]
  4. LEVOTHYROXINE [Concomitant]
  5. ALLEGRA [Concomitant]

REACTIONS (5)
  - Application site erythema [Not Recovered/Not Resolved]
  - Application site papules [Not Recovered/Not Resolved]
  - Application site pain [Not Recovered/Not Resolved]
  - Application site pruritus [Not Recovered/Not Resolved]
  - Application site dryness [Not Recovered/Not Resolved]
